FAERS Safety Report 6609549-4 (Version None)
Quarter: 2010Q1

REPORT INFORMATION
  Report Type: 
  Country: None (occurrence: None)
  Receive Date: 20100302
  Receipt Date: 20100222
  Transmission Date: 20100710
  Serious: Yes (Other)
  Sender: FDA-Public Use
  Company Number: US-JNJFOC-20100210431

PATIENT
  Sex: Male
  Weight: 68.95 kg

DRUGS (5)
  1. DURAGESIC-100 [Suspect]
     Indication: PANCREATIC DISORDER
     Dosage: 100UG/HR+50UG/HR
     Route: 062
  2. DURAGESIC-100 [Suspect]
     Dosage: 100UG/HR+50UG/HR
     Route: 062
  3. NITROGLYCERIN [Concomitant]
     Indication: CARDIAC DISORDER
     Route: 062
  4. COMPAZINE [Concomitant]
     Indication: NAUSEA
     Route: 048
  5. WARFARIN SODIUM [Concomitant]
     Indication: CARDIAC DISORDER
     Route: 048

REACTIONS (16)
  - ABNORMAL LOSS OF WEIGHT [None]
  - ASTHENIA [None]
  - BALANCE DISORDER [None]
  - CONDITION AGGRAVATED [None]
  - DEVICE RELATED INFECTION [None]
  - DIZZINESS [None]
  - DRUG EFFECT DECREASED [None]
  - DYSPNOEA [None]
  - GASTROINTESTINAL DISORDER [None]
  - HALLUCINATION [None]
  - HYPERTENSION [None]
  - INADEQUATE ANALGESIA [None]
  - INAPPROPRIATE SCHEDULE OF DRUG ADMINISTRATION [None]
  - OVERDOSE [None]
  - PRODUCT QUALITY ISSUE [None]
  - THROMBOSIS IN DEVICE [None]
